FAERS Safety Report 15416490 (Version 1)
Quarter: 2018Q3

REPORT INFORMATION
  Report Type: Report from Study
  Country: BR (occurrence: BR)
  Receive Date: 20180924
  Receipt Date: 20180924
  Transmission Date: 20181010
  Serious: Yes (Other)
  Sender: FDA-Public Use
  Company Number: PHHY2018BR077730

PATIENT
  Age: 17 Year
  Sex: Female
  Weight: 59 kg

DRUGS (1)
  1. EXJADE [Suspect]
     Active Substance: DEFERASIROX
     Indication: SICKLE CELL ANAEMIA
     Dosage: 250 MG, QD ( 2 DF)
     Route: 048
     Dates: start: 2010

REACTIONS (10)
  - Pulpitis dental [Recovered/Resolved]
  - Decreased immune responsiveness [Recovering/Resolving]
  - Hypophagia [Recovered/Resolved]
  - Platelet count decreased [Recovered/Resolved]
  - Pharyngitis [Recovered/Resolved]
  - Infection [Recovered/Resolved]
  - Asthenia [Recovered/Resolved]
  - Oropharyngeal pain [Recovering/Resolving]
  - Malaise [Recovered/Resolved]
  - Influenza [Recovering/Resolving]

NARRATIVE: CASE EVENT DATE: 201807
